FAERS Safety Report 5566486-4 (Version None)
Quarter: 2007Q4

REPORT INFORMATION
  Report Type: 
  Country: None (occurrence: None)
  Receive Date: 20071219
  Receipt Date: 20071213
  Transmission Date: 20080405
  Serious: Yes (Hospitalization)
  Sender: FDA-Public Use
  Company Number: IT-AVENTIS-200715797EU

PATIENT
  Age: 78 Year
  Sex: Female

DRUGS (5)
  1. FUROSEMIDE [Suspect]
     Route: 048
     Dates: start: 20070812
  2. ALDACTONE [Suspect]
     Route: 048
     Dates: start: 20070812, end: 20070913
  3. TICLID [Concomitant]
  4. PANTORC [Concomitant]
     Dosage: DOSE: 1 TABLET
  5. HUMULIN 70/30 [Concomitant]
     Indication: DIABETES MELLITUS

REACTIONS (2)
  - DEHYDRATION [None]
  - HYPERKALAEMIA [None]
